FAERS Safety Report 6889716-5 (Version None)
Quarter: 2010Q3

REPORT INFORMATION
  Report Type: 
  Country: None (occurrence: None)
  Receive Date: 20100730
  Receipt Date: 20080417
  Transmission Date: 20110219
  Serious: No
  Sender: FDA-Public Use
  Company Number: US-PFIZER INC-2008034698

PATIENT
  Sex: Male
  Weight: 61.363 kg

DRUGS (3)
  1. LIPITOR [Suspect]
     Indication: BLOOD CHOLESTEROL INCREASED
     Route: 048
     Dates: start: 20080308, end: 20080320
  2. ALTACE [Concomitant]
     Indication: HYPERTENSION
  3. PRILOSEC [Concomitant]

REACTIONS (3)
  - FATIGUE [None]
  - SENSATION OF HEAVINESS [None]
  - WRONG TECHNIQUE IN DRUG USAGE PROCESS [None]
